FAERS Safety Report 16066362 (Version 1)
Quarter: 2019Q1

REPORT INFORMATION
  Report Type: Spontaneous
  Country: US (occurrence: US)
  Receive Date: 20190212
  Receipt Date: 20190212
  Transmission Date: 20190418
  Serious: No
  Sender: FDA-Public Use
  Company Number: None

PATIENT
  Age: 66 Year
  Sex: Male

DRUGS (2)
  1. PREDNISONE. [Concomitant]
     Active Substance: PREDNISONE
  2. ZYTIGA TAB 500MG [Suspect]
     Active Substance: ABIRATERONE ACETATE
     Route: 048
     Dates: start: 201803

REACTIONS (3)
  - Blood cholesterol increased [None]
  - Drug effect decreased [None]
  - Drug ineffective [None]

NARRATIVE: CASE EVENT DATE: 20190212
